FAERS Safety Report 8815378 (Version 1)
Quarter: 2012Q4

REPORT INFORMATION
  Report Type: 
  Country: US (occurrence: US)
  Receive Date: 20120928
  Receipt Date: 20120928
  Transmission Date: 20130627
  Serious: No
  Sender: FDA-Public Use
  Company Number: US-PFIZER INC-2012236712

PATIENT
  Age: 32 Year
  Sex: Female
  Weight: 81.63 kg

DRUGS (11)
  1. PRISTIQ [Suspect]
     Indication: DEPRESSION
     Dosage: 50 mg, 1x/day
     Route: 048
  2. PRISTIQ [Suspect]
     Dosage: 100 mg, 1x/day
     Route: 048
  3. PRISTIQ [Suspect]
     Dosage: 50 mg, 1x/day
     Route: 048
  4. HYDROXYCHLOROQUINE [Concomitant]
     Indication: SJOGREN^S SYNDROME
     Dosage: 200 mg, 2x/day
  5. INDOMETHACIN [Concomitant]
     Dosage: 50 mg (two capsules of 25mg), 3x/day
  6. TOPIRAMATE [Concomitant]
     Dosage: 50 mg, 4x/day
  7. SINGULAIR [Concomitant]
     Dosage: 10 mg, 1x/day
  8. EVOXAC [Concomitant]
     Dosage: 30 mg, 3x/day
  9. PANTOPRAZOLE [Concomitant]
     Dosage: 40 mg, 1x/day
  10. CALCIUM CARBONATE/COLECALCIFEROL [Concomitant]
     Dosage: 400/500 mg/IU, 2x/day
  11. POTASSIUM [Concomitant]
     Dosage: 595 mg, UNK

REACTIONS (2)
  - Gastrointestinal disorder [Not Recovered/Not Resolved]
  - Constipation [Not Recovered/Not Resolved]
